FAERS Safety Report 10280657 (Version 2)
Quarter: 2014Q3

REPORT INFORMATION
  Report Type: Spontaneous
  Country: US (occurrence: US)
  Receive Date: 20140707
  Receipt Date: 20140818
  Transmission Date: 20150326
  Serious: No
  Sender: FDA-Public Use
  Company Number: US-BAYER-2014-099805

PATIENT
  Age: 43 Year
  Sex: Female

DRUGS (1)
  1. CLIMARA [Suspect]
     Active Substance: ESTRADIOL
     Indication: HORMONE REPLACEMENT THERAPY
     Dosage: 1 DF, OW
     Route: 062
     Dates: start: 2013

REACTIONS (5)
  - Fatigue [None]
  - Asthenia [None]
  - Asthenia [None]
  - Drug ineffective [None]
  - Inappropriate schedule of drug administration [None]

NARRATIVE: CASE EVENT DATE: 2014
